FAERS Safety Report 6433048-6 (Version None)
Quarter: 2009Q4

REPORT INFORMATION
  Report Type: 
  Country: None (occurrence: None)
  Receive Date: 20091109
  Receipt Date: 20091030
  Transmission Date: 20100525
  Serious: Yes (Hospitalization)
  Sender: FDA-Public Use
  Company Number: US-ELI_LILLY_AND_COMPANY-US200909004101

PATIENT
  Sex: Female

DRUGS (2)
  1. GEMZAR [Suspect]
     Indication: OVARIAN CANCER RECURRENT
     Dosage: 1970 MG, 3 WEEKS ON, 1 WEEK OFF
     Dates: start: 20090401
  2. AVASTIN [Concomitant]
     Indication: OVARIAN CANCER RECURRENT
     Dosage: 1350 MG, EVERY 4 WEEKS
     Route: 042
     Dates: start: 20090401, end: 20090801

REACTIONS (6)
  - ALOPECIA [None]
  - CHILLS [None]
  - DEEP VEIN THROMBOSIS [None]
  - NAUSEA [None]
  - PULMONARY EMBOLISM [None]
  - PYREXIA [None]
